FAERS Safety Report 12930583 (Version 3)
Quarter: 2017Q1

REPORT INFORMATION
  Report Type: Spontaneous
  Country: IT (occurrence: IT)
  Receive Date: 20161110
  Receipt Date: 20170206
  Transmission Date: 20170428
  Serious: Yes (Other)
  Sender: FDA-Public Use
  Company Number: IT-MYLANLABS-2016M1047763

PATIENT

DRUGS (1)
  1. IBUPROFEN. [Suspect]
     Active Substance: IBUPROFEN
     Indication: PYREXIA
     Dosage: 400 MG, QD
     Route: 065

REACTIONS (5)
  - Hyperhidrosis [Unknown]
  - Hypothermia [Unknown]
  - Overdose [Unknown]
  - Pallor [Unknown]
  - Asthenia [Unknown]
